FAERS Safety Report 18860431 (Version 2)
Quarter: 2021Q1

REPORT INFORMATION
  Report Type: Report from Study
  Country: None (occurrence: CA)
  Receive Date: 20210208
  Receipt Date: 20210307
  Transmission Date: 20210420
  Serious: Yes (Other)
  Sender: FDA-Public Use
  Company Number: CA-ABBVIE-21K-028-3761288-00

PATIENT
  Age: 47 Year
  Sex: Female

DRUGS (1)
  1. HUMIRA [Suspect]
     Active Substance: ADALIMUMAB
     Indication: CROHN^S DISEASE
     Route: 058
     Dates: start: 20201230

REACTIONS (12)
  - Nausea [Recovered/Resolved]
  - Dizziness [Unknown]
  - Vomiting [Recovered/Resolved]
  - Diarrhoea [Recovered/Resolved]
  - Loss of consciousness [Recovered/Resolved]
  - Cough [Not Recovered/Not Resolved]
  - Muscle spasms [Recovered/Resolved]
  - Abdominal pain [Recovered/Resolved]
  - Rhinorrhoea [Not Recovered/Not Resolved]
  - Injection site hyperaesthesia [Not Recovered/Not Resolved]
  - Malaise [Recovered/Resolved]
  - Diarrhoea [Recovered/Resolved]

NARRATIVE: CASE EVENT DATE: 20201230
